FAERS Safety Report 7659507-6 (Version None)
Quarter: 2011Q3

REPORT INFORMATION
  Report Type: 
  Country: None (occurrence: None)
  Receive Date: 20110805
  Receipt Date: 20110728
  Transmission Date: 20111222
  Serious: Yes (Hospitalization)
  Sender: FDA-Public Use
  Company Number: JP-ACTELION-A-CH2011-51545

PATIENT
  Sex: Female

DRUGS (11)
  1. WARFARIN SODIUM [Concomitant]
  2. METHOTREXATE [Concomitant]
  3. LEVOFLOXACIN [Concomitant]
  4. OXYGEN [Concomitant]
  5. TRACLEER [Suspect]
     Indication: PULMONARY ARTERIAL HYPERTENSION
     Dosage: 62.5 MG, BID
     Route: 048
     Dates: start: 20110630, end: 20110705
  6. TRACLEER [Suspect]
     Dosage: 62.5 MG, QD
     Route: 048
     Dates: start: 20110623, end: 20110629
  7. TRACLEER [Suspect]
     Dosage: 62.5 MG, QD
     Route: 048
     Dates: start: 20110706, end: 20110708
  8. METHYLPREDNISOLONE [Concomitant]
  9. ASPIRIN [Concomitant]
  10. BERAPROST SODIUM [Concomitant]
  11. CEFTRIAXONE SODIUM [Concomitant]

REACTIONS (5)
  - INTERSTITIAL LUNG DISEASE [None]
  - FATIGUE [None]
  - PYREXIA [None]
  - INFLAMMATION [None]
  - HYPOXIA [None]
